FAERS Safety Report 4414431-7 (Version None)
Quarter: 2004Q3

REPORT INFORMATION
  Report Type: 
  Country: None (occurrence: None)
  Receive Date: 20040803
  Receipt Date: 20040728
  Transmission Date: 20050211
  Serious: Yes (Life-Threatening)
  Sender: FDA-Public Use
  Company Number: IT-MERCK-0407ITA00052

PATIENT
  Age: 57 Year
  Sex: Female

DRUGS (3)
  1. [THERAPY UNSPECIFIED] [Concomitant]
     Route: 065
  2. VIOXX [Suspect]
     Indication: NEPHROLITHIASIS
     Route: 048
     Dates: start: 20040709, end: 20040714
  3. VIOXX [Suspect]
     Indication: URETERAL DISORDER
     Route: 048
     Dates: start: 20040709, end: 20040714

REACTIONS (2)
  - ANGIONEUROTIC OEDEMA [None]
  - URTICARIA [None]
